FAERS Safety Report 8317626-5 (Version None)
Quarter: 2012Q2

REPORT INFORMATION
  Report Type: 
  Country: None (occurrence: None)
  Receive Date: 20120427
  Receipt Date: 20090617
  Transmission Date: 20120825
  Serious: No
  Sender: FDA-Public Use
  Company Number: US-TEVA-2009007187

PATIENT
  Sex: Female

DRUGS (1)
  1. NUVIGIL [Suspect]
     Indication: SLEEP DISORDER
     Route: 048
     Dates: start: 20090601

REACTIONS (1)
  - PSYCHOMOTOR HYPERACTIVITY [None]
